FAERS Safety Report 9722895 (Version 2)
Quarter: 2014Q1

REPORT INFORMATION
  Report Type: Spontaneous
  Country: CA (occurrence: CA)
  Receive Date: 20131202
  Receipt Date: 20140306
  Transmission Date: 20141002
  Serious: Yes (Death, Other)
  Sender: FDA-Public Use
  Company Number: CA-ASTELLAS-2013US012308

PATIENT
  Age: 90 Year
  Sex: Male

DRUGS (1)
  1. XTANDI [Suspect]
     Indication: PRODUCT USED FOR UNKNOWN INDICATION
     Dosage: UNK
     Route: 048
     Dates: start: 20130814, end: 201311

REACTIONS (3)
  - Death [Fatal]
  - Anaemia [Unknown]
  - Fatigue [Unknown]
